FAERS Safety Report 25514638 (Version 1)
Quarter: 2025Q3

REPORT INFORMATION
  Report Type: Spontaneous
  Country: US (occurrence: US)
  Receive Date: 20250703
  Receipt Date: 20250703
  Transmission Date: 20251021
  Serious: No
  Sender: RADIUS PHARM
  Company Number: US-RADIUS HEALTH INC.-2025US000528

PATIENT
  Sex: Female

DRUGS (1)
  1. TYMLOS [Suspect]
     Active Substance: ABALOPARATIDE
     Indication: Osteoporosis
     Dates: start: 202302, end: 202408

REACTIONS (9)
  - Fatigue [Unknown]
  - Head discomfort [Unknown]
  - Asthenia [Unknown]
  - Balance disorder [Recovered/Resolved]
  - Vertigo [Recovered/Resolved]
  - Injection site bruising [Unknown]
  - Injection site pain [Unknown]
  - Blood pressure decreased [Unknown]
  - Blood pressure decreased [Unknown]
